FAERS Safety Report 25903912 (Version 1)
Quarter: 2025Q4

REPORT INFORMATION
  Report Type: Spontaneous
  Country: GB (occurrence: GB)
  Receive Date: 20251010
  Receipt Date: 20251010
  Transmission Date: 20260118
  Serious: Yes (Other)
  Sender: AUROBINDO
  Company Number: GB-MHRA-MED-202509300954272560-MCBPQ

PATIENT
  Age: 42 Year
  Sex: Male

DRUGS (2)
  1. DULOXETINE [Suspect]
     Active Substance: DULOXETINE
     Indication: Sciatica
     Dosage: 30 MILLIGRAM, ONCE A DAY (30MG OD)
     Route: 065
     Dates: start: 20250529
  2. LEVOTHYROXINE [Concomitant]
     Active Substance: LEVOTHYROXINE
     Indication: Hypothyroidism
     Route: 065

REACTIONS (1)
  - Swollen tongue [Recovered/Resolved with Sequelae]

NARRATIVE: CASE EVENT DATE: 20250529
